FAERS Safety Report 6988251-3 (Version None)
Quarter: 2010Q3

REPORT INFORMATION
  Report Type: 
  Country: None (occurrence: None)
  Receive Date: 20100914
  Receipt Date: 20100903
  Transmission Date: 20110219
  Serious: Yes (Congenital Anomaly)
  Sender: FDA-Public Use
  Company Number: 105589

PATIENT
  Age: 12 Month

DRUGS (1)
  1. AMIODARONE HCL [Suspect]
     Indication: TACHYCARDIA FOETAL
     Dosage: 1200MG/DAY AT GESTATION; 100MG/DAY AFTER BI

REACTIONS (11)
  - ATAXIA [None]
  - BLOOD PH DECREASED [None]
  - DEVELOPMENTAL DELAY [None]
  - DILATATION VENTRICULAR [None]
  - FOOT DEFORMITY [None]
  - HYPOTONIA [None]
  - MATERNAL DRUGS AFFECTING FOETUS [None]
  - MOTOR DEVELOPMENTAL DELAY [None]
  - NERVOUS SYSTEM DISORDER [None]
  - NEURODEVELOPMENTAL DISORDER [None]
  - SPEECH DISORDER DEVELOPMENTAL [None]
